FAERS Safety Report 23353087 (Version 3)
Quarter: 2025Q2

REPORT INFORMATION
  Report Type: Spontaneous
  Country: IT (occurrence: IT)
  Receive Date: 20231230
  Receipt Date: 20250501
  Transmission Date: 20250717
  Serious: Yes (Death, Other)
  Sender: AMGEN
  Company Number: IT-AMGEN-ITASP2023232721

PATIENT
  Age: 54 Year

DRUGS (4)
  1. BLINCYTO [Suspect]
     Active Substance: BLINATUMOMAB
     Indication: B precursor type acute leukaemia
     Dosage: 28 MICROGRAM, QD [ADMINISTERED FOR 28 DAYS CONTINUOUS INTRAVENOUS INFUSION]
     Route: 040
  2. SPRYCEL [Suspect]
     Active Substance: DASATINIB
     Indication: B precursor type acute leukaemia
     Dosage: 140 MILLIGRAM, QD (FOR A 12-WEEK INDUCTION TREATMENT)
     Route: 048
  3. METHOTREXATE SODIUM [Concomitant]
     Active Substance: METHOTREXATE SODIUM
     Indication: Prophylaxis
  4. METHYLPREDNISOLONE [Concomitant]
     Active Substance: METHYLPREDNISOLONE
     Indication: Prophylaxis

REACTIONS (2)
  - Death [Fatal]
  - Acute lymphocytic leukaemia recurrent [Unknown]
